FAERS Safety Report 5723172-5 (Version None)
Quarter: 2008Q2

REPORT INFORMATION
  Report Type: 
  Country: None (occurrence: None)
  Receive Date: 20080430
  Receipt Date: 20080421
  Transmission Date: 20081010
  Serious: Yes (Hospitalization)
  Sender: FDA-Public Use
  Company Number: FR-ELI_LILLY_AND_COMPANY-FR200804005022

PATIENT
  Age: 76 Year
  Sex: Male

DRUGS (1)
  1. ALIMTA [Suspect]
     Indication: LUNG NEOPLASM MALIGNANT
     Dosage: UNK, UNKNOWN
     Route: 042
     Dates: start: 20080117

REACTIONS (5)
  - HAEMOPTYSIS [None]
  - INFLAMMATION [None]
  - PURPURA [None]
  - PYREXIA [None]
  - RASH MORBILLIFORM [None]
